FAERS Safety Report 8404857-9 (Version None)
Quarter: 2012Q2

REPORT INFORMATION
  Report Type: 
  Country: None (occurrence: None)
  Receive Date: 20120601
  Receipt Date: 20120521
  Transmission Date: 20120825
  Serious: No
  Sender: FDA-Public Use
  Company Number: US-ASTRAZENECA-2012SE32588

PATIENT
  Age: 78 Year
  Sex: Female
  Weight: 76.2 kg

DRUGS (7)
  1. MAGNESIUM HYDROXIDE TAB [Concomitant]
  2. LIPITOR [Concomitant]
  3. GABAPENTIN [Concomitant]
  4. ESTRACE [Concomitant]
  5. NEXIUM [Suspect]
     Indication: GASTROOESOPHAGEAL REFLUX DISEASE
     Dosage: 40 MG EVERY MORNING
     Route: 048
     Dates: start: 20070101
  6. SYNTHROID [Concomitant]
  7. TESTOSTERONE HORMONE CREAM [Concomitant]

REACTIONS (3)
  - ABDOMINAL PAIN UPPER [None]
  - COUNTERFEIT DRUG ADMINISTERED [None]
  - DRUG DOSE OMISSION [None]
